FAERS Safety Report 7740167-0 (Version None)
Quarter: 2011Q3

REPORT INFORMATION
  Report Type: 
  Country: None (occurrence: None)
  Receive Date: 20110909
  Receipt Date: 20110905
  Transmission Date: 20111222
  Serious: Yes (Other)
  Sender: FDA-Public Use
  Company Number: GB-ROCHE-788404

PATIENT
  Age: 61 Year
  Sex: Female

DRUGS (11)
  1. TRAMADOL HYDROCHLORIDE [Suspect]
     Dosage: 8 DOSE FORM DAILY
     Route: 065
  2. DICLOFENAC SODIUM [Concomitant]
  3. LANSOPRAZOLE [Concomitant]
  4. NAPROXEN [Suspect]
     Route: 065
  5. VENTOLIN HFA [Concomitant]
  6. MISOPROSTOL [Suspect]
     Route: 065
  7. ACETAMINOPHEN [Suspect]
     Dosage: 8 DOSE FORM DAILY
     Route: 065
  8. SERETIDE [Concomitant]
     Dosage: DOSE: 500/50
  9. OXYBUTYNIN [Concomitant]
  10. AMITRIPTYLINE HCL [Suspect]
     Route: 065
  11. CITALOPRAM HYDROBROMIDE [Concomitant]

REACTIONS (7)
  - ASTHMA [None]
  - RHEUMATOID ARTHRITIS [None]
  - PAIN [None]
  - SWELLING [None]
  - IDIOPATHIC THROMBOCYTOPENIC PURPURA [None]
  - MUSCULOSKELETAL STIFFNESS [None]
  - OSTEOARTHRITIS [None]
